FAERS Safety Report 23594794 (Version 1)
Quarter: 2024Q1

REPORT INFORMATION
  Report Type: Report from Study
  Country: DO (occurrence: DO)
  Receive Date: 20240305
  Receipt Date: 20240305
  Transmission Date: 20240410
  Serious: Yes (Other)
  Sender: FDA-Public Use
  Company Number: DO-JNJFOC-20240276863

PATIENT
  Age: 80 Year
  Sex: Male
  Weight: 70 kg

DRUGS (1)
  1. IMBRUVICA [Suspect]
     Active Substance: IBRUTINIB
     Indication: Chronic lymphocytic leukaemia
     Route: 048
     Dates: start: 20240122

REACTIONS (5)
  - Angina pectoris [Unknown]
  - Headache [Unknown]
  - Pain [Unknown]
  - Product availability issue [Unknown]
  - Stress [Unknown]

NARRATIVE: CASE EVENT DATE: 20240201
